FAERS Safety Report 5783006-X (Version None)
Quarter: 2008Q2

REPORT INFORMATION
  Report Type: 
  Country: None (occurrence: None)
  Receive Date: 20080624
  Receipt Date: 20080619
  Transmission Date: 20081010
  Serious: Yes (Other)
  Sender: FDA-Public Use
  Company Number: AU-NOVOPROD-276582

PATIENT
  Age: 33 Year
  Sex: Male
  Weight: 70 kg

DRUGS (12)
  1. NOVOSEVEN [Suspect]
     Indication: HAEMORRHAGE
     Dosage: 7.2 MG, SINGLE
     Route: 042
     Dates: start: 20070906
  2. TRANEXAMIC [Concomitant]
     Indication: DRUG USE FOR UNKNOWN INDICATION
     Dosage: BEFORE DOSE 1
  3. PROTAMINE SULFATE [Concomitant]
     Indication: DRUG USE FOR UNKNOWN INDICATION
     Dosage: BEFORE AND AFTER DOSE 1
  4. HEPARIN [Concomitant]
     Indication: DRUG USE FOR UNKNOWN INDICATION
     Dosage: BEFORE DOSE 1
  5. RED BLOOD CELLS [Concomitant]
     Dosage: 8000 UNK, BEFORE DOSE 1
  6. RED BLOOD CELLS [Concomitant]
     Dosage: 2000 UNK, AFTER DOSE 1
  7. FRESH FROZEN PLASMA [Concomitant]
     Dosage: 8000 UNK, UNK
  8. FRESH FROZEN PLASMA [Concomitant]
     Dosage: 4000 UNK, AFTER DOSE 1
  9. CRYOPRECIPITATES [Concomitant]
     Dosage: 600 UNK, BEFORE DOSE 1
  10. CRYOPRECIPITATES [Concomitant]
     Dosage: 1900 UNK, AFTER DOSE 1
  11. PLATELETS [Concomitant]
     Dosage: 20 UNK, BEFORE DOSE 1
  12. PLATELETS [Concomitant]
     Dosage: 10 UNK, AFTER DOSE 1

REACTIONS (3)
  - CEREBRAL INFARCTION [None]
  - INTRACRANIAL ANEURYSM [None]
  - SUBARACHNOID HAEMORRHAGE [None]
